FAERS Safety Report 8958027 (Version 5)
Quarter: 2013Q3

REPORT INFORMATION
  Report Type: Report from Study
  Country: ES (occurrence: ES)
  Receive Date: 20121211
  Receipt Date: 20130731
  Transmission Date: 20140515
  Serious: Yes (Death, Hospitalization)
  Sender: FDA-Public Use
  Company Number: ES-BAYER-2012-095260

PATIENT
  Age: 63 Year
  Sex: Female
  Weight: 43.7 kg

DRUGS (12)
  1. REGORAFENIB [Suspect]
     Indication: COLORECTAL CANCER
     Dosage: 160 MG, QD
     Route: 048
     Dates: start: 20120828, end: 20120907
  2. REGORAFENIB [Suspect]
     Indication: COLORECTAL CANCER
  3. FERROGRADUMET [Concomitant]
     Indication: ANAEMIA
     Dosage: 325 MG/DAY
     Route: 048
     Dates: start: 20120813, end: 20120907
  4. LEVOTHROID [Concomitant]
     Indication: HYPOTHYROIDISM
     Dosage: 150 MG/DAY
     Route: 048
     Dates: start: 20120828
  5. PARACETAMOL [Concomitant]
     Indication: ABDOMINAL PAIN
     Dosage: 2 G/DAY
     Route: 048
     Dates: start: 20120813, end: 20120907
  6. PARACETAMOL [Concomitant]
     Indication: ABDOMINAL PAIN
     Dosage: 3 G/DAY
     Route: 042
     Dates: start: 20120909, end: 20120909
  7. PARACETAMOL [Concomitant]
     Indication: ABDOMINAL PAIN
     Dosage: UNK, PRN
     Route: 042
     Dates: start: 20121016, end: 20121023
  8. PARACETAMOL [Concomitant]
     Indication: ABDOMINAL PAIN
     Dosage: 1 G/DAY
     Route: 042
     Dates: start: 20121031
  9. SEVREDOL [Concomitant]
     Indication: ABDOMINAL PAIN
     Dosage: 10 MG/DAY
     Route: 048
     Dates: start: 20120813, end: 20120907
  10. NOLOTIL [Concomitant]
     Indication: ABDOMINAL PAIN
     Dosage: 150 MG/DAY
     Route: 048
     Dates: start: 20120813, end: 20120907
  11. OMEPRAZOL [Concomitant]
     Indication: PROPHYLAXIS
     Dosage: 40 MG/DAY
     Route: 042
     Dates: start: 20120911
  12. PRIMPERAN [Concomitant]
     Indication: ABDOMINAL PAIN
     Dosage: 30 MG/DAY
     Route: 042
     Dates: start: 20120908

REACTIONS (3)
  - Intestinal obstruction [Fatal]
  - Enterocolitis [Not Recovered/Not Resolved]
  - Urinary tract infection pseudomonal [Recovered/Resolved]
